FAERS Safety Report 7004777-0 (Version None)
Quarter: 2010Q3

REPORT INFORMATION
  Report Type: 
  Country: None (occurrence: None)
  Receive Date: 20100921
  Receipt Date: 20100913
  Transmission Date: 20110219
  Serious: Yes (Other)
  Sender: FDA-Public Use
  Company Number: JP-JNJFOC-20100905755

PATIENT
  Sex: Male

DRUGS (4)
  1. DUROTEP MT [Suspect]
     Indication: CANCER PAIN
     Route: 062
  2. DUROTEP MT [Suspect]
     Route: 062
  3. OXYCODONE HCL [Suspect]
     Indication: PRODUCT USED FOR UNKNOWN INDICATION
     Route: 048
  4. MORPHINE SULPHATE HYDRATE [Suspect]
     Indication: PRODUCT USED FOR UNKNOWN INDICATION
     Route: 065

REACTIONS (2)
  - DELUSION [None]
  - HALLUCINATION [None]
